FAERS Safety Report 8895686 (Version 3)
Quarter: 2014Q2

REPORT INFORMATION
  Report Type: Spontaneous
  Country: GB (occurrence: GB)
  Receive Date: 20121108
  Receipt Date: 20140530
  Transmission Date: 20141212
  Serious: Yes (Life-Threatening, Other)
  Sender: FDA-Public Use
  Company Number: GB-AMGEN-GBRSP2012070468

PATIENT
  Age: 12 Year
  Sex: Female

DRUGS (3)
  1. PROLIA [Suspect]
     Indication: HYPERCALCAEMIA
     Dosage: 0.27 MG/KG, ONE TIME DOSE
     Route: 058
  2. PROLIA [Suspect]
     Dosage: 5 MG, Q4WK
     Route: 065
  3. PROLIA [Suspect]
     Dosage: 5 MG, Q7WK
     Route: 065

REACTIONS (1)
  - Hypercalcaemia [Unknown]
